FAERS Safety Report 23903712 (Version 1)
Quarter: 2024Q2

REPORT INFORMATION
  Report Type: Spontaneous
  Country: AU (occurrence: AU)
  Receive Date: 20240527
  Receipt Date: 20240527
  Transmission Date: 20240716
  Serious: Yes (Other)
  Sender: FDA-Public Use
  Company Number: AU-BAXTER-2024BAX018930

PATIENT
  Age: 7 Year
  Sex: Male

DRUGS (3)
  1. PROPOFOL [Suspect]
     Active Substance: PROPOFOL
     Indication: Sedation
     Route: 065
  2. FUROSEMIDE [Concomitant]
     Active Substance: FUROSEMIDE
     Dosage: 40 MG
     Route: 065
  3. TECHNETIUM TC 99M MERTIATIDE [Concomitant]
     Active Substance: BETIATIDE
     Dosage: INJECTIONS OF 188 MBQ
     Route: 065

REACTIONS (1)
  - Renal ischaemia [Unknown]
